FAERS Safety Report 9108604 (Version 6)
Quarter: 2017Q4

REPORT INFORMATION
  Report Type: Spontaneous
  Country: US (occurrence: US)
  Receive Date: 20130222
  Receipt Date: 20171229
  Transmission Date: 20180321
  Serious: Yes (Hospitalization, Other)
  Sender: FDA-Public Use
  Company Number: US-MERCK-1302USA009108

PATIENT
  Sex: Female

DRUGS (4)
  1. FOSAMAX [Suspect]
     Active Substance: ALENDRONATE SODIUM
     Indication: OSTEOPOROSIS
     Dosage: 70 MG, QW
     Route: 048
     Dates: start: 199809, end: 20110122
  2. ALENDRONATE SODIUM. [Suspect]
     Active Substance: ALENDRONATE SODIUM
     Indication: OSTEOPOROSIS
     Dosage: 70 MG, UNK
     Route: 065
     Dates: start: 20081110, end: 20110122
  3. CALCIUM (UNSPECIFIED) [Concomitant]
     Active Substance: CALCIUM
     Indication: ROUTINE HEALTH MAINTENANCE
     Dosage: 1200 MG, QD
     Route: 048
     Dates: start: 1990
  4. ALENDRONATE SODIUM. [Suspect]
     Active Substance: ALENDRONATE SODIUM
     Indication: OSTEOPOROSIS
     Dosage: 70 MG, QW
     Route: 048
     Dates: start: 20080827

REACTIONS (24)
  - Hypersensitivity [Not Recovered/Not Resolved]
  - Infection [Unknown]
  - Femur fracture [Unknown]
  - Blood cholesterol increased [Unknown]
  - Radius fracture [Unknown]
  - Vitamin D deficiency [Not Recovered/Not Resolved]
  - Impaired healing [Unknown]
  - Tooth disorder [Unknown]
  - Pubis fracture [Unknown]
  - Foot fracture [Recovered/Resolved]
  - Nuclear magnetic resonance imaging abnormal [Unknown]
  - Diverticulum [Unknown]
  - Groin pain [Unknown]
  - Ankle fracture [Recovered/Resolved]
  - Anxiety [Not Recovered/Not Resolved]
  - Arthralgia [Unknown]
  - Hernia [Unknown]
  - Blood pressure increased [Not Recovered/Not Resolved]
  - Depression [Not Recovered/Not Resolved]
  - Mitral valve incompetence [Unknown]
  - Large intestine polyp [Unknown]
  - Acne cystic [Unknown]
  - Ulna fracture [Unknown]
  - Knee arthroplasty [Unknown]

NARRATIVE: CASE EVENT DATE: 2008
